FAERS Safety Report 6541182-5 (Version None)
Quarter: 2010Q1

REPORT INFORMATION
  Report Type: 
  Country: None (occurrence: None)
  Receive Date: 20100118
  Receipt Date: 20100112
  Transmission Date: 20100710
  Serious: Yes (Hospitalization)
  Sender: FDA-Public Use
  Company Number: B0609610A

PATIENT
  Sex: Female

DRUGS (2)
  1. NABUCOX [Suspect]
     Indication: SCIATICA
     Dosage: 500MG TWICE PER DAY
     Route: 048
     Dates: start: 20091029, end: 20091105
  2. CYMBALTA [Suspect]
     Indication: DRUG USE FOR UNKNOWN INDICATION
     Dosage: 1Z PER DAY
     Route: 048
     Dates: start: 20091029, end: 20091107

REACTIONS (5)
  - DERMATITIS [None]
  - PRURITUS [None]
  - RASH MACULO-PAPULAR [None]
  - SKIN LESION [None]
  - TOXIC SKIN ERUPTION [None]
